FAERS Safety Report 12980167 (Version 1)
Quarter: 2016Q4

REPORT INFORMATION
  Report Type: Spontaneous
  Country: AU (occurrence: AU)
  Receive Date: 20161128
  Receipt Date: 20161128
  Transmission Date: 20170207
  Serious: Yes (Hospitalization, Other)
  Sender: FDA-Public Use
  Company Number: PHHY2016AU160820

PATIENT
  Age: 16 Year
  Sex: Female

DRUGS (8)
  1. CABERGOLINE. [Concomitant]
     Active Substance: CABERGOLINE
     Indication: PRODUCT USED FOR UNKNOWN INDICATION
     Route: 065
  2. OCTREOTIDE. [Suspect]
     Active Substance: OCTREOTIDE
     Dosage: 30 MG, QMO
     Route: 065
     Dates: start: 201505
  3. TEMOZOLOMIDE. [Concomitant]
     Active Substance: TEMOZOLOMIDE
     Indication: PRODUCT USED FOR UNKNOWN INDICATION
     Route: 065
  4. PASIREOTIDE [Concomitant]
     Active Substance: PASIREOTIDE
     Indication: PRODUCT USED FOR UNKNOWN INDICATION
     Route: 065
  5. OCTREOTIDE. [Suspect]
     Active Substance: OCTREOTIDE
     Indication: ACROMEGALY
     Dosage: 10 MG, QMO
     Route: 065
     Dates: start: 201410
  6. PEGVISOMANT [Concomitant]
     Active Substance: PEGVISOMANT
     Dosage: 20 MG, QD
     Route: 058
     Dates: start: 201610
  7. OCTREOTIDE. [Suspect]
     Active Substance: OCTREOTIDE
     Dosage: 20 MG, QMO
     Route: 065
     Dates: start: 201503
  8. PEGVISOMANT [Concomitant]
     Active Substance: PEGVISOMANT
     Indication: PRODUCT USED FOR UNKNOWN INDICATION
     Dosage: 10 MG, QD
     Route: 058
     Dates: start: 201609

REACTIONS (9)
  - Paralysis [Unknown]
  - Insulin-like growth factor increased [Unknown]
  - Neoplasm progression [Recovering/Resolving]
  - Diabetes mellitus [Unknown]
  - Blood growth hormone increased [Unknown]
  - Eyelid ptosis [Unknown]
  - Diplopia [Unknown]
  - Exophthalmos [Unknown]
  - Paraesthesia [Unknown]

NARRATIVE: CASE EVENT DATE: 201503
